FAERS Safety Report 14457260 (Version 2)
Quarter: 2018Q1

REPORT INFORMATION
  Report Type: Report from Study
  Country: US (occurrence: US)
  Receive Date: 20180130
  Receipt Date: 20180313
  Transmission Date: 20180509
  Serious: Yes (Hospitalization, Other)
  Sender: FDA-Public Use
  Company Number: US-JNJFOC-20171134592

PATIENT
  Sex: Male

DRUGS (15)
  1. IMBRUVICA [Suspect]
     Active Substance: IBRUTINIB
     Indication: WALDENSTROM^S MACROGLOBULINAEMIA
     Route: 048
     Dates: start: 20161122
  2. PROTONIX [Concomitant]
     Active Substance: PANTOPRAZOLE SODIUM
  3. SOTALOL. [Concomitant]
     Active Substance: SOTALOL
  4. ALLOPURINOL. [Concomitant]
     Active Substance: ALLOPURINOL
  5. IMBRUVICA [Suspect]
     Active Substance: IBRUTINIB
     Indication: WALDENSTROM^S MACROGLOBULINAEMIA
     Route: 048
     Dates: start: 20160106
  6. IMBRUVICA [Suspect]
     Active Substance: IBRUTINIB
     Indication: WALDENSTROM^S MACROGLOBULINAEMIA
     Route: 048
     Dates: start: 20161127
  7. IRON [Concomitant]
     Active Substance: IRON
  8. TRAMADOL. [Concomitant]
     Active Substance: TRAMADOL
  9. ELIQUIS [Concomitant]
     Active Substance: APIXABAN
  10. BICALUTAMIDE. [Concomitant]
     Active Substance: BICALUTAMIDE
  11. RAMIPRIL. [Concomitant]
     Active Substance: RAMIPRIL
  12. LASIX [Concomitant]
     Active Substance: FUROSEMIDE
  13. FERROUS SULFATE. [Concomitant]
     Active Substance: FERROUS SULFATE
  14. TOPROL XL [Concomitant]
     Active Substance: METOPROLOL SUCCINATE
  15. TAMSULOSIN HYDROCHLORIDE. [Concomitant]
     Active Substance: TAMSULOSIN HYDROCHLORIDE

REACTIONS (2)
  - Prostate cancer metastatic [Recovering/Resolving]
  - Procedural haemorrhage [Recovered/Resolved]
